FAERS Safety Report 20904551 (Version 1)
Quarter: 2022Q2

REPORT INFORMATION
  Report Type: Spontaneous
  Country: JP (occurrence: JP)
  Receive Date: 20220602
  Receipt Date: 20220602
  Transmission Date: 20220721
  Serious: Yes (Other)
  Sender: FDA-Public Use
  Company Number: JP-BRISTOL-MYERS SQUIBB COMPANY-2022-047486

PATIENT
  Age: 72 Year
  Sex: Female
  Weight: 58 kg

DRUGS (15)
  1. VIDAZA [Suspect]
     Active Substance: AZACITIDINE
     Indication: Acute myeloid leukaemia
     Route: 058
     Dates: start: 20210802, end: 2021
  2. VIDAZA [Suspect]
     Active Substance: AZACITIDINE
     Route: 058
     Dates: start: 20211004, end: 20211129
  3. CYTARABINE [Suspect]
     Active Substance: CYTARABINE
     Indication: Acute myeloid leukaemia
     Route: 058
     Dates: start: 2021, end: 2021
  4. CYTARABINE [Suspect]
     Active Substance: CYTARABINE
     Route: 058
     Dates: start: 2021, end: 2021
  5. VENETOCLAX [Concomitant]
     Active Substance: VENETOCLAX
     Indication: Acute myeloid leukaemia
     Dates: start: 20210802, end: 2021
  6. VENETOCLAX [Concomitant]
     Active Substance: VENETOCLAX
     Dates: start: 20211004, end: 2021
  7. VENETOCLAX [Concomitant]
     Active Substance: VENETOCLAX
     Dates: start: 2021, end: 20211129
  8. VENETOCLAX [Concomitant]
     Active Substance: VENETOCLAX
     Dates: start: 2021, end: 2021
  9. DAUNORUBICIN HYDROCHLORIDE [Concomitant]
     Active Substance: DAUNORUBICIN HYDROCHLORIDE
     Indication: Acute myeloid leukaemia
     Dates: start: 2021, end: 2021
  10. MEROPENEM [Concomitant]
     Active Substance: MEROPENEM
     Dates: start: 2021, end: 2021
  11. VANCOMYCIN [Concomitant]
     Active Substance: VANCOMYCIN
     Dates: start: 2021, end: 2021
  12. POSACONAZOLE [Concomitant]
     Active Substance: POSACONAZOLE
     Dates: end: 2021
  13. POSACONAZOLE [Concomitant]
     Active Substance: POSACONAZOLE
     Dates: start: 2021, end: 2021
  14. HUMAN RED BLOOD CELL [Concomitant]
     Active Substance: HUMAN RED BLOOD CELL
     Dates: start: 2021, end: 2021
  15. PLATELETS [Concomitant]
     Active Substance: HUMAN PLATELET, ALLOGENIC
     Dates: start: 2021, end: 2021

REACTIONS (6)
  - Tumour lysis syndrome [Unknown]
  - Febrile neutropenia [Recovered/Resolved]
  - Pyrexia [Unknown]
  - White blood cell count decreased [Unknown]
  - Blood lactate dehydrogenase increased [Unknown]
  - Platelet count decreased [Unknown]

NARRATIVE: CASE EVENT DATE: 20210101
